FAERS Safety Report 6329871-9 (Version None)
Quarter: 2009Q3

REPORT INFORMATION
  Report Type: 
  Country: None (occurrence: None)
  Receive Date: 20090825
  Receipt Date: 20090810
  Transmission Date: 20100115
  Serious: No
  Sender: FDA-Public Use
  Company Number: B0588734A

PATIENT
  Sex: 0

DRUGS (5)
  1. LAMICTAL [Suspect]
     Indication: DRUG USE FOR UNKNOWN INDICATION
     Dosage: ORAL
     Route: 048
  2. PHENYTOIN [Concomitant]
  3. CARBAMAZEPINE [Concomitant]
  4. GABAPENTIN [Concomitant]
  5. OLANZAPINE [Concomitant]

REACTIONS (8)
  - ABNORMAL SENSATION IN EYE [None]
  - DEPRESSED MOOD [None]
  - DYSPNOEA [None]
  - ECZEMA [None]
  - HEADACHE [None]
  - MALAISE [None]
  - SOMNOLENCE [None]
  - TONIC CONVULSION [None]
